FAERS Safety Report 5673867-7 (Version None)
Quarter: 2008Q2

REPORT INFORMATION
  Report Type: 
  Country: None (occurrence: None)
  Receive Date: 20080226
  Receipt Date: 20070103
  Transmission Date: 20081010
  Serious: Yes (Hospitalization)
  Sender: FDA-Public Use
  Company Number: 462232

PATIENT
  Age: 17 Year
  Weight: 60 kg

DRUGS (1)
  1. ACCUTANE [Suspect]
     Indication: ACNE
     Dosage: 60 MG DAILY ORAL
     Route: 048
     Dates: start: 20060711, end: 20060831

REACTIONS (1)
  - CONVULSION [None]
